FAERS Safety Report 11316796 (Version 2)
Quarter: 2017Q1

REPORT INFORMATION
  Report Type: Spontaneous
  Country: US (occurrence: US)
  Receive Date: 20150728
  Receipt Date: 20170329
  Transmission Date: 20170428
  Serious: No
  Sender: FDA-Public Use
  Company Number: US-PFIZER INC-2015247098

PATIENT
  Age: 63 Year
  Sex: Female

DRUGS (2)
  1. CELEBREX [Concomitant]
     Active Substance: CELECOXIB
     Indication: DRUG THERAPY
     Dosage: 200 MG, DAILY
     Route: 048
  2. EFFEXOR XR [Suspect]
     Active Substance: VENLAFAXINE HYDROCHLORIDE
     Indication: DRUG THERAPY
     Dosage: 75 MG, DAILY
     Route: 048

REACTIONS (5)
  - Heart rate increased [Unknown]
  - Tinnitus [Unknown]
  - Palpitations [Unknown]
  - Dizziness [Unknown]
  - Withdrawal syndrome [Unknown]
